FAERS Safety Report 7669991 (Version 3)
Quarter: 2012Q4

REPORT INFORMATION
  Report Type: Report from Study
  Country: US (occurrence: US)
  Receive Date: 20101116
  Receipt Date: 20121008
  Transmission Date: 20130627
  Serious: Yes (Hospitalization)
  Sender: FDA-Public Use
  Company Number: US-JNJFOC-20101102582

PATIENT
  Age: 13 Year
  Sex: Male
  Weight: 35.24 kg

DRUGS (4)
  1. REMICADE [Suspect]
     Indication: INFLAMMATORY BOWEL DISEASE
     Route: 042
     Dates: start: 20081117
  2. GROWTH HORMONE [Concomitant]
  3. MULTIVITAMINS [Concomitant]
  4. VITAMIN D [Concomitant]

REACTIONS (1)
  - Humerus fracture [Recovered/Resolved]
